FAERS Safety Report 5344344-8 (Version None)
Quarter: 2007Q2

REPORT INFORMATION
  Report Type: 
  Country: None (occurrence: None)
  Receive Date: 20070604
  Receipt Date: 20070521
  Transmission Date: 20071010
  Serious: Yes (Hospitalization)
  Sender: FDA-Public Use
  Company Number: US-SHR-US-2007-018404

PATIENT
  Sex: Male

DRUGS (1)
  1. BETASERON [Suspect]
     Route: 058

REACTIONS (3)
  - HEMIPLEGIA [None]
  - INJECTION SITE SCAR [None]
  - PAIN [None]
